FAERS Safety Report 4552756-5 (Version None)
Quarter: 2005Q1

REPORT INFORMATION
  Report Type: 
  Country: None (occurrence: None)
  Receive Date: 20050114
  Receipt Date: 20041019
  Transmission Date: 20050727
  Serious: Yes (Hospitalization)
  Sender: FDA-Public Use
  Company Number: US-JNJFOC-20041007496

PATIENT
  Sex: Female

DRUGS (6)
  1. ACETAMINOPHEN [Suspect]
     Route: 049
  2. ACETAMINOPHEN [Suspect]
     Indication: DRUG USE FOR UNKNOWN INDICATION
     Route: 049
  3. INTERFERON GAMMA-1B [Suspect]
     Route: 058
  4. MOTRIN [Concomitant]
  5. CARBOPLATIN [Concomitant]
  6. PACLITAXEL [Concomitant]

REACTIONS (4)
  - HEPATIC STEATOSIS [None]
  - LIVER FUNCTION TEST ABNORMAL [None]
  - NEUTROPENIA [None]
  - PYREXIA [None]
